FAERS Safety Report 4955792-X (Version None)
Quarter: 2006Q1

REPORT INFORMATION
  Report Type: 
  Country: None (occurrence: None)
  Receive Date: 20060127
  Receipt Date: 20050209
  Transmission Date: 20060701
  Serious: Yes (Hospitalization)
  Sender: FDA-Public Use
  Company Number: 05-02-0189

PATIENT
  Age: 46 Year
  Sex: Male

DRUGS (5)
  1. CLOZAPINE [Suspect]
     Indication: SCHIZOPHRENIA, PARANOID TYPE
     Dosage: 800MG QD, ORAL
     Route: 048
     Dates: start: 20030501, end: 20041101
  2. COGENTIN [Concomitant]
  3. ZOLOFT [Concomitant]
  4. RISPERDAL [Concomitant]
  5. CLONIDINE [Concomitant]

REACTIONS (2)
  - DRUG INEFFECTIVE [None]
  - LEUKOCYTOSIS [None]
